FAERS Safety Report 6180823-1 (Version None)
Quarter: 2009Q2

REPORT INFORMATION
  Report Type: 
  Country: None (occurrence: None)
  Receive Date: 20090504
  Receipt Date: 20090504
  Transmission Date: 20091009
  Serious: Yes (Hospitalization)
  Sender: FDA-Public Use
  Company Number: None

PATIENT
  Age: 36 Year
  Sex: Female
  Weight: 60.2 kg

DRUGS (2)
  1. TRAMADOL HCL [Suspect]
     Indication: BACK DISORDER
     Dates: start: 20090428, end: 20090501
  2. TRAMADOL HCL [Suspect]
     Indication: NEURALGIA
     Dates: start: 20090428, end: 20090501

REACTIONS (4)
  - CONVULSION [None]
  - DRUG ABUSE [None]
  - INCORRECT DOSE ADMINISTERED [None]
  - MEDICATION ERROR [None]
